FAERS Safety Report 17873536 (Version 2)
Quarter: 2020Q3

REPORT INFORMATION
  Report Type: Spontaneous
  Country: JP (occurrence: JP)
  Receive Date: 20200609
  Receipt Date: 20200810
  Transmission Date: 20201103
  Serious: Yes (Hospitalization)
  Sender: FDA-Public Use
  Company Number: JP-ROCHE-2616856

PATIENT
  Age: 83 Year
  Sex: Female

DRUGS (1)
  1. TECENTRIQ [Suspect]
     Active Substance: ATEZOLIZUMAB
     Indication: NON-SMALL CELL LUNG CANCER
     Route: 041
     Dates: start: 20200514, end: 20200514

REACTIONS (6)
  - Pleural effusion [Recovering/Resolving]
  - Blood creatinine increased [Unknown]
  - Decreased appetite [Recovering/Resolving]
  - Platelet count decreased [Recovering/Resolving]
  - C-reactive protein increased [Unknown]
  - Malaise [Recovering/Resolving]

NARRATIVE: CASE EVENT DATE: 20200530
